FAERS Safety Report 14019850 (Version 1)
Quarter: 2017Q3

REPORT INFORMATION
  Report Type: Other
  Country: CA (occurrence: CA)
  Receive Date: 20170928
  Receipt Date: 20170928
  Transmission Date: 20171128
  Serious: Yes (Disabling)
  Sender: FDA-Public Use
  Company Number: CA-APOTEX-2017AP018823

PATIENT
  Age: 16 Year
  Sex: Male

DRUGS (3)
  1. KETOROLAC [Suspect]
     Active Substance: KETOROLAC\KETOROLAC TROMETHAMINE
     Indication: DENTAL DISCOMFORT
     Dosage: 10 MG, QID
     Route: 048
  2. TYLENOL WITH CODEINE [Concomitant]
     Active Substance: ACETAMINOPHEN\CODEINE PHOSPHATE
     Indication: PRODUCT USED FOR UNKNOWN INDICATION
     Dosage: 6 DF, UNK
     Route: 048
  3. APO-DEXAMETHASONE [Suspect]
     Active Substance: DEXAMETHASONE
     Indication: DENTAL DISCOMFORT
     Dosage: UNK
     Route: 048

REACTIONS (7)
  - Anxiety [Unknown]
  - Paraesthesia [Unknown]
  - Feeling jittery [Unknown]
  - Limb discomfort [Unknown]
  - Hypoaesthesia [Unknown]
  - Incorrect dose administered [Unknown]
  - Peripheral coldness [Unknown]
